FAERS Safety Report 9610943 (Version 2)
Quarter: 2013Q4

REPORT INFORMATION
  Report Type: Report from Study
  Country: US (occurrence: US)
  Receive Date: 20131009
  Receipt Date: 20131009
  Transmission Date: 20140711
  Serious: Yes (Death, Life-Threatening, Hospitalization, Other)
  Sender: FDA-Public Use
  Company Number: US-TAKEDA-2013TUS000704

PATIENT
  Age: 66 Year
  Sex: Male
  Weight: 80.3 kg

DRUGS (31)
  1. BLINDED ALLOPURINOL [Suspect]
     Indication: HYPERURICAEMIA
     Dosage: UNK, QD
     Route: 048
     Dates: start: 20120816, end: 20130514
  2. BLINDED FEBUXOSTAT [Suspect]
     Indication: HYPERURICAEMIA
     Dosage: UNK, QD
     Route: 048
     Dates: start: 20120816, end: 20130514
  3. PRADAXA [Concomitant]
     Indication: ATRIAL FIBRILLATION
     Dosage: 150 MG, BID
     Route: 048
     Dates: start: 20130203
  4. SOTALOL [Concomitant]
     Indication: VENTRICULAR TACHYCARDIA
     Dosage: 20 MG, BID
     Route: 048
     Dates: start: 201304
  5. FUROSEMIDE [Concomitant]
     Indication: CARDIAC FAILURE CONGESTIVE
     Dosage: 40 MG, BID
     Route: 048
     Dates: start: 20121109
  6. ZETIA [Concomitant]
     Indication: HYPERLIPIDAEMIA
     Dosage: 10 MG, QD
     Route: 048
     Dates: start: 20121013
  7. MULTIVITAMIN                       /00097801/ [Concomitant]
     Indication: MEDICAL DIET
     Dosage: 1 DF, QD
     Route: 048
     Dates: start: 20130204
  8. K-DUR [Concomitant]
     Indication: HYPOKALAEMIA
     Dosage: 10 MEQ, BID
     Route: 048
     Dates: start: 20130204
  9. MIDODRINE [Concomitant]
     Indication: HYPOTENSION
     Dosage: 2.5 MG, QD
     Route: 048
     Dates: start: 201305
  10. MIDODRINE [Concomitant]
     Dosage: 5 MG, QAM
     Route: 048
     Dates: start: 201305
  11. ADVAIR 250/50 [Concomitant]
     Indication: CHRONIC OBSTRUCTIVE PULMONARY DISEASE
     Dosage: 1 PUFF, BID
     Route: 050
     Dates: start: 20121126
  12. METOLAZONE [Concomitant]
     Indication: OEDEMA PERIPHERAL
     Dosage: 2.5 MG, PRN
     Route: 048
     Dates: start: 201212
  13. TYLENOL                            /00020001/ [Concomitant]
     Indication: DIABETIC NEPHROPATHY
     Dosage: 325 MG, PRN
     Route: 048
     Dates: start: 201303
  14. TEMAZEPAM [Concomitant]
     Indication: INSOMNIA
     Dosage: 15 MG, PRN
     Route: 048
     Dates: start: 20121012
  15. ZANTAC [Concomitant]
     Indication: GASTROOESOPHAGEAL REFLUX DISEASE
     Dosage: 150 MG, QD
     Route: 048
     Dates: start: 201202
  16. LEVEMIR [Concomitant]
     Indication: DIABETES MELLITUS
     Dosage: 10 IU, QD
     Route: 058
     Dates: start: 20130322
  17. LACTULOSE [Concomitant]
     Indication: CONSTIPATION PROPHYLAXIS
     Dosage: 30 ML, QD
     Route: 048
     Dates: start: 201305
  18. TRAMADOL [Concomitant]
     Indication: DIABETIC NEUROPATHY
     Dosage: 50 MG, PRN
     Route: 048
     Dates: start: 201305
  19. LIPITOR [Concomitant]
     Indication: HYPERLIPIDAEMIA
     Dosage: 20 MG, QD
     Route: 048
     Dates: start: 20130515
  20. DOBUTAMINE [Concomitant]
     Indication: LEFT VENTRICULAR DYSFUNCTION
     Dosage: 489.6 MG, QD
     Route: 042
     Dates: start: 20130818, end: 20130821
  21. LYRICA [Concomitant]
     Indication: DIABETIC NEUROPATHY
     Dosage: 50 MG, QD
     Route: 048
     Dates: start: 20130711
  22. SILDENAFIL [Concomitant]
     Indication: LEFT VENTRICULAR DYSFUNCTION
     Dosage: 20/TAKE 0.5 TAB MG, TID
     Route: 048
     Dates: start: 20130822
  23. SPIRONOLACTONE [Concomitant]
     Indication: HYPERTENSION
     Dosage: 25/TAKE 0.5 TAB MG, BID
     Route: 048
     Dates: start: 20030615
  24. LOVENOX [Concomitant]
     Indication: VENTRICULAR DYSFUNCTION
     Dosage: 30 MG, BID
     Route: 058
     Dates: start: 20130816, end: 20130820
  25. LOVENOX [Concomitant]
     Dosage: 30 MG, QD
     Route: 058
     Dates: start: 20130821, end: 20130821
  26. PANTOPRAZOLE [Concomitant]
     Indication: GASTROOESOPHAGEAL REFLUX PROPHYLAXIS
     Dosage: 40 MG, QD
     Route: 048
     Dates: start: 20130815, end: 20130821
  27. HEPARIN [Concomitant]
     Indication: THROMBOSIS PROPHYLAXIS
     Dosage: 50 IU, QD
     Route: 042
     Dates: start: 20130819, end: 20130819
  28. VIAGRA [Concomitant]
     Indication: LEFT VENTRICULAR DYSFUNCTION
     Dosage: 12.5 MG, TID
     Route: 048
     Dates: start: 20130817, end: 20130821
  29. ALBUTEROL SULFATE [Concomitant]
     Indication: LEFT VENTRICULAR DYSFUNCTION
     Dosage: 4 PUFF, ONCE
     Route: 050
     Dates: start: 20130819, end: 20130819
  30. COUMADIN                           /00014802/ [Concomitant]
     Indication: LEFT VENTRICULAR DYSFUNCTION
     Dosage: 5 MG, QD
     Route: 048
     Dates: start: 20130819, end: 20130820
  31. ASPIRIN [Concomitant]
     Indication: CORONARY ARTERY DISEASE
     Dosage: 81 MG, QS
     Route: 048
     Dates: start: 20130525

REACTIONS (1)
  - Left ventricular dysfunction [Fatal]
